FAERS Safety Report 5220632-0 (Version None)
Quarter: 2007Q1

REPORT INFORMATION
  Report Type: 
  Country: None (occurrence: None)
  Receive Date: 20070122
  Receipt Date: 20070111
  Transmission Date: 20070707
  Serious: Yes (Hospitalization)
  Sender: FDA-Public Use
  Company Number: HQWYE404115JAN07

PATIENT
  Age: 56 Year
  Sex: Male

DRUGS (17)
  1. MYLOTARG [Suspect]
     Indication: ACUTE MYELOID LEUKAEMIA RECURRENT
     Dosage: 9 MG/M^2 1X PER 1 DAY INTRAVENOUS DRIP
     Route: 041
     Dates: start: 20060522, end: 20060522
  2. MYLOTARG [Suspect]
     Indication: ACUTE MYELOID LEUKAEMIA RECURRENT
     Dosage: 9 MG/M^2 1X PER 1 DAY INTRAVENOUS DRIP
     Route: 041
     Dates: start: 20060811, end: 20060811
  3. INSULIN [Concomitant]
  4. POLYMYXIN B SULFATE (POLYMYXIN B SULFATE) [Concomitant]
  5. ITRACONAZOLE [Concomitant]
  6. FAMOTIDINE [Concomitant]
  7. MUCOSTA (REBAMIPIDE) [Concomitant]
  8. PREDNISOLONE [Concomitant]
  9. SULFAMETHOXAZOLE + TRIMETHOPRIM [Concomitant]
  10. ISODINE (POVIDONE-IODINE) [Concomitant]
  11. MYSER (DIFLUPREDNATE) [Concomitant]
  12. KERATINAMIN (UREA) [Concomitant]
  13. RESTAMIN (DIPHENHYDRAMINE) [Concomitant]
  14. MEROPEN (MEROPENEM) [Concomitant]
  15. HUMULIN R [Concomitant]
  16. DECADRON [Concomitant]
  17. AMOBAN (ZOPICLONE) [Concomitant]

REACTIONS (16)
  - ALANINE AMINOTRANSFERASE INCREASED [None]
  - ASPARTATE AMINOTRANSFERASE INCREASED [None]
  - BLOOD BILIRUBIN INCREASED [None]
  - DEPRESSION [None]
  - HAEMATOCRIT DECREASED [None]
  - HAEMOGLOBIN DECREASED [None]
  - HEPATIC FUNCTION ABNORMAL [None]
  - INSOMNIA [None]
  - INTRAOCULAR PRESSURE INCREASED [None]
  - MALAISE [None]
  - MEMORY IMPAIRMENT [None]
  - NEUTROPHIL COUNT DECREASED [None]
  - PLATELET COUNT DECREASED [None]
  - PROTEIN TOTAL DECREASED [None]
  - RED BLOOD CELL COUNT DECREASED [None]
  - WHITE BLOOD CELL COUNT DECREASED [None]
